FAERS Safety Report 24348883 (Version 2)
Quarter: 2025Q2

REPORT INFORMATION
  Report Type: Report from Study
  Country: US (occurrence: US)
  Receive Date: 20240923
  Receipt Date: 20250501
  Transmission Date: 20250717
  Serious: Yes (Other)
  Sender: AUROBINDO
  Company Number: US-AUROBINDO-AUR-APL-2024-045171

PATIENT
  Age: 81 Year
  Sex: Female

DRUGS (8)
  1. DECITABINE [Suspect]
     Active Substance: DECITABINE
     Indication: Myeloproliferative neoplasm
     Route: 065
  2. DECITABINE [Suspect]
     Active Substance: DECITABINE
     Indication: Isocitrate dehydrogenase gene mutation
  3. VENETOCLAX [Suspect]
     Active Substance: VENETOCLAX
     Indication: Myeloproliferative neoplasm
     Route: 065
  4. VENETOCLAX [Suspect]
     Active Substance: VENETOCLAX
     Indication: Isocitrate dehydrogenase gene mutation
  5. ENASIDENIB [Suspect]
     Active Substance: ENASIDENIB
     Indication: Isocitrate dehydrogenase gene mutation
     Route: 065
  6. ENASIDENIB [Suspect]
     Active Substance: ENASIDENIB
     Indication: Myeloproliferative neoplasm
  7. IVOSIDENIB [Suspect]
     Active Substance: IVOSIDENIB
     Indication: Myeloproliferative neoplasm
     Route: 065
  8. IVOSIDENIB [Suspect]
     Active Substance: IVOSIDENIB
     Indication: Isocitrate dehydrogenase gene mutation

REACTIONS (1)
  - Drug ineffective [Unknown]
